FAERS Safety Report 7302093-0 (Version None)
Quarter: 2011Q1

REPORT INFORMATION
  Report Type: 
  Country: None (occurrence: None)
  Receive Date: 20110218
  Receipt Date: 20110207
  Transmission Date: 20110831
  Serious: Yes (Hospitalization)
  Sender: FDA-Public Use
  Company Number: NL-MEDIMMUNE-MEDI-0012602

PATIENT
  Sex: Male
  Weight: 5.8 kg

DRUGS (4)
  1. SYNAGIS [Suspect]
     Route: 030
     Dates: start: 20110110, end: 20110110
  2. SYNAGIS [Suspect]
     Dates: start: 20110207, end: 20110207
  3. MULTIPLE UNKNOWN MEDICATIONS [Concomitant]
  4. SYNAGIS [Suspect]
     Route: 030
     Dates: start: 20101116, end: 20101116

REACTIONS (3)
  - DIARRHOEA [None]
  - ROTAVIRUS INFECTION [None]
  - VOMITING [None]
